FAERS Safety Report 9225195 (Version 3)
Quarter: 2013Q3

REPORT INFORMATION
  Report Type: Report from Study
  Country: TR (occurrence: TR)
  Receive Date: 20130411
  Receipt Date: 20130916
  Transmission Date: 20140515
  Serious: Yes (Death, Other)
  Sender: FDA-Public Use
  Company Number: TR-ROCHE-1208737

PATIENT
  Sex: 0

DRUGS (4)
  1. ALTEPLASE [Suspect]
     Indication: CARDIAC VALVE REPLACEMENT COMPLICATION
     Route: 042
  2. ALTEPLASE [Suspect]
     Route: 042
  3. ALTEPLASE [Suspect]
     Route: 042
  4. STREPTOKINASE [Suspect]
     Indication: CARDIAC VALVE REPLACEMENT COMPLICATION
     Route: 042

REACTIONS (11)
  - Haemorrhage intracranial [Fatal]
  - Ischaemic stroke [Fatal]
  - Drug ineffective [Unknown]
  - Gastrointestinal haemorrhage [Unknown]
  - Gingival bleeding [Unknown]
  - Epistaxis [Unknown]
  - Haemoptysis [Unknown]
  - Vaginal haemorrhage [Unknown]
  - Acute myocardial infarction [Unknown]
  - Transient ischaemic attack [Unknown]
  - Peripheral embolism [Unknown]
